FAERS Safety Report 21146914 (Version 1)
Quarter: 2022Q3

REPORT INFORMATION
  Report Type: Spontaneous
  Country: CA (occurrence: CA)
  Receive Date: 20220729
  Receipt Date: 20220729
  Transmission Date: 20221027
  Serious: Yes (Other)
  Sender: FDA-Public Use
  Company Number: CA-BAXTER-2022BAX015703

PATIENT
  Age: 65 Year
  Sex: Male

DRUGS (5)
  1. CYCLOPHOSPHAMIDE [Suspect]
     Active Substance: CYCLOPHOSPHAMIDE
     Indication: Cardiac failure
     Dosage: DOSAGE FORM: NOT SPECIFIED (ROUTE: UNKNOWN)
     Route: 065
  2. AMOXICILLIN [Suspect]
     Active Substance: AMOXICILLIN
     Indication: Lung opacity
     Dosage: DOSAGE FORM: NOT SPECIFIED (ROUTE: UNKNOWN)
     Route: 065
  3. PREDNISONE [Suspect]
     Active Substance: PREDNISONE
     Indication: Cardiac failure
     Dosage: DOSAGE FORM: NOT SPECIFIED (ROUTE: UNKNOWN)
     Route: 065
  4. VINCRISTINE SULFATE [Suspect]
     Active Substance: VINCRISTINE SULFATE
     Indication: Cardiac failure
     Dosage: DOSAGE FORM: NOT SPECIFIED (ROUTE: UNKNOWN)
     Route: 065
  5. RITUXIMAB [Suspect]
     Active Substance: RITUXIMAB
     Indication: Cardiac failure
     Dosage: (ROUTE: UNKNOWN)
     Route: 065

REACTIONS (1)
  - Drug ineffective [Unknown]
